FAERS Safety Report 5184207-4 (Version None)
Quarter: 2006Q4

REPORT INFORMATION
  Report Type: 
  Country: None (occurrence: None)
  Receive Date: 20061220
  Receipt Date: 20060217
  Transmission Date: 20070319
  Serious: No
  Sender: FDA-Public Use
  Company Number: US-GLAXOSMITHKLINE-A0594098A

PATIENT
  Age: 41 Year
  Sex: Female

DRUGS (1)
  1. AMERICAN FARE NTS, 21MG STEP 1 [Suspect]
     Dates: start: 20060217

REACTIONS (5)
  - APPLICATION SITE ERYTHEMA [None]
  - APPLICATION SITE IRRITATION [None]
  - APPLICATION SITE PRURITUS [None]
  - HYPOAESTHESIA [None]
  - MUSCULAR WEAKNESS [None]
